FAERS Safety Report 6584083-9 (Version None)
Quarter: 2010Q1

REPORT INFORMATION
  Report Type: 
  Country: None (occurrence: None)
  Receive Date: 20100213
  Receipt Date: 20100213
  Transmission Date: 20100710
  Serious: Yes (Hospitalization)
  Sender: FDA-Public Use
  Company Number: None

PATIENT
  Age: 51 Year
  Sex: Female
  Weight: 56.6996 kg

DRUGS (1)
  1. AVELOX [Suspect]
     Indication: SINUSITIS
     Dosage: 400 MG 1X/DAY FOR 10 DAYS PO
     Route: 048
     Dates: start: 20091216, end: 20091217

REACTIONS (4)
  - DIZZINESS [None]
  - DYSPNOEA [None]
  - FEAR [None]
  - FEELING ABNORMAL [None]
